FAERS Safety Report 6498268-3 (Version None)
Quarter: 2009Q4

REPORT INFORMATION
  Report Type: 
  Country: None (occurrence: None)
  Receive Date: 20091215
  Receipt Date: 20091209
  Transmission Date: 20100525
  Serious: Yes (Death, Hospitalization)
  Sender: FDA-Public Use
  Company Number: B0613200A

PATIENT
  Sex: Female

DRUGS (12)
  1. AUGMENTIN [Suspect]
     Indication: DRUG USE FOR UNKNOWN INDICATION
     Dosage: 1G TWICE PER DAY
     Route: 048
     Dates: start: 20091119
  2. AUGMENTIN '125' [Suspect]
     Indication: ERYSIPELAS
     Dosage: 1G THREE TIMES PER DAY
     Route: 042
     Dates: start: 20091121
  3. PREVISCAN [Suspect]
     Indication: DRUG USE FOR UNKNOWN INDICATION
     Dosage: 20MG VARIABLE DOSE
     Route: 048
     Dates: end: 20091122
  4. PENICILLIN G [Concomitant]
     Indication: ERYSIPELAS
     Route: 065
     Dates: start: 20091122
  5. BISOPROLOL [Concomitant]
     Indication: DRUG USE FOR UNKNOWN INDICATION
     Dosage: 1.25MG PER DAY
     Route: 048
  6. AMIODARONE HCL [Concomitant]
     Indication: DRUG USE FOR UNKNOWN INDICATION
     Dosage: 200MG PER DAY
     Route: 048
  7. FUROSEMIDE [Concomitant]
     Indication: HYPERTENSION
     Dosage: 50MG PER DAY
     Route: 048
  8. PERINDOPRIL [Concomitant]
     Indication: DRUG USE FOR UNKNOWN INDICATION
     Dosage: 5MG PER DAY
     Route: 048
  9. LEVOTHYROXINE SODIUM [Concomitant]
     Indication: HYPOTHYROIDISM
     Dosage: 100MCG PER DAY
     Route: 048
  10. KARDEGIC [Concomitant]
     Indication: DRUG USE FOR UNKNOWN INDICATION
     Dosage: 75MG PER DAY
     Route: 048
  11. HUMALOG [Concomitant]
     Dosage: 24IU TWICE PER DAY
     Route: 058
  12. TAHOR [Concomitant]
     Dosage: 10MG PER DAY
     Route: 048

REACTIONS (8)
  - BRADYCARDIA [None]
  - DRUG INTERACTION [None]
  - GENERAL PHYSICAL HEALTH DETERIORATION [None]
  - HAEMATOMA [None]
  - OVERDOSE [None]
  - PYREXIA [None]
  - SHOCK HAEMORRHAGIC [None]
  - SUBCUTANEOUS ABSCESS [None]
